FAERS Safety Report 6357414-2 (Version None)
Quarter: 2009Q3

REPORT INFORMATION
  Report Type: 
  Country: None (occurrence: None)
  Receive Date: 20090916
  Receipt Date: 20090831
  Transmission Date: 20100115
  Serious: No
  Sender: FDA-Public Use
  Company Number: A0803800A

PATIENT
  Age: 74 Year
  Sex: Male

DRUGS (3)
  1. AVANDARYL [Suspect]
     Indication: DRUG USE FOR UNKNOWN INDICATION
     Route: 048
     Dates: start: 20050101, end: 20090101
  2. LANTUS [Suspect]
     Dosage: 18U PER DAY
     Route: 058
     Dates: start: 20090101
  3. MULTIPLE MEDICATIONS [Concomitant]

REACTIONS (9)
  - BLOOD GLUCOSE DECREASED [None]
  - BLOOD GLUCOSE INCREASED [None]
  - DIZZINESS [None]
  - HYPERHIDROSIS [None]
  - RASH [None]
  - RENAL DISORDER [None]
  - SOMNOLENCE [None]
  - URINE OUTPUT DECREASED [None]
  - VISION BLURRED [None]
